FAERS Safety Report 23070564 (Version 1)
Quarter: 2023Q4

REPORT INFORMATION
  Report Type: Spontaneous
  Country: US (occurrence: None)
  Receive Date: 20231013
  Receipt Date: 20231013
  Transmission Date: 20240110
  Serious: Yes (Death)
  Sender: FDA-Public Use
  Company Number: None

PATIENT
  Age: 83 Year
  Sex: Female

DRUGS (1)
  1. OFEV [Suspect]
     Active Substance: NINTEDANIB
     Dosage: FREQUENCY : TWICE A DAY;?
     Route: 048
     Dates: start: 20200130, end: 20230627

REACTIONS (9)
  - Abdominal pain [None]
  - Sepsis [None]
  - Pneumoperitoneum [None]
  - Intestinal perforation [None]
  - Acute respiratory failure [None]
  - Interstitial lung disease [None]
  - Malnutrition [None]
  - Hypokalaemia [None]
  - Hypertension [None]

NARRATIVE: CASE EVENT DATE: 20230627
